FAERS Safety Report 19221731 (Version 4)
Quarter: 2025Q4

REPORT INFORMATION
  Report Type: Report from Study
  Country: KR (occurrence: KR)
  Receive Date: 20210505
  Receipt Date: 20251002
  Transmission Date: 20260117
  Serious: Yes (Other)
  Sender: TAKEDA
  Company Number: KR-TAKEDA-2021TUS026974

PATIENT
  Age: 25 Year
  Sex: Female
  Weight: 45 kg

DRUGS (21)
  1. VEDOLIZUMAB [Suspect]
     Active Substance: VEDOLIZUMAB
     Indication: Colitis ulcerative
     Dosage: 300 MILLIGRAM
  2. Bolgre [Concomitant]
     Indication: Iron deficiency anaemia
     Dosage: 10 MILLILITER, QD
     Dates: start: 20201010, end: 20210730
  3. Rabiet [Concomitant]
     Indication: Gastritis prophylaxis
     Dosage: 100 MILLIGRAM, QD
     Dates: start: 20210415, end: 20210421
  4. DURICEF [Concomitant]
     Active Substance: CEFADROXIL
     Indication: Cellulitis
     Dosage: 500 MILLIGRAM, BID
     Dates: start: 20210415, end: 20210421
  5. ULTRACET [Concomitant]
     Active Substance: ACETAMINOPHEN\TRAMADOL HYDROCHLORIDE
     Indication: Cellulitis
     Dosage: UNK UNK, BID
     Dates: start: 20210415, end: 20210421
  6. REBAMIPIDE [Concomitant]
     Active Substance: REBAMIPIDE
     Indication: Gastritis prophylaxis
     Dosage: 100 MILLIGRAM, TID
     Dates: start: 20210415, end: 20210421
  7. CEFTRIAXONE [Concomitant]
     Active Substance: CEFTRIAXONE
     Indication: Cellulitis
     Dosage: 2 GRAM, QD
     Dates: start: 20210415, end: 20210415
  8. AUGMENTIN [Concomitant]
     Active Substance: AMOXICILLIN\CLAVULANATE POTASSIUM
     Indication: Cellulitis
     Dosage: 625 MILLIGRAM, TID
     Dates: start: 20210421, end: 20210427
  9. TD [Concomitant]
     Active Substance: CLOSTRIDIUM TETANI TOXOID ANTIGEN (FORMALDEHYDE INACTIVATED)\CORYNEBACTERIUM DIPHTHERIAE TOXOID ANTI
     Indication: Tetanus immunisation
     Dosage: UNK UNK, QD
     Dates: start: 20210604, end: 20210604
  10. TD [Concomitant]
     Active Substance: CLOSTRIDIUM TETANI TOXOID ANTIGEN (FORMALDEHYDE INACTIVATED)\CORYNEBACTERIUM DIPHTHERIAE TOXOID ANTI
     Indication: Diphtheria immunisation
  11. LEVOFLOXACIN [Concomitant]
     Active Substance: LEVOFLOXACIN
     Indication: Cystitis
     Dosage: 500 MILLIGRAM, QD
     Dates: start: 20211127, end: 20211206
  12. PENTASA [Concomitant]
     Active Substance: MESALAMINE
     Indication: Colitis ulcerative
     Dosage: 4 GRAM, QD
     Dates: start: 20200717
  13. Azabio [Concomitant]
     Indication: Colitis ulcerative
     Dosage: 75 MILLIGRAM, QD
     Dates: start: 20200904, end: 20210923
  14. PROBIOTICS NOS [Concomitant]
     Active Substance: PROBIOTICS NOS
     Indication: Colitis ulcerative
     Dosage: 20 MILLIGRAM, BID
     Dates: start: 20201114, end: 20210730
  15. Purinetone [Concomitant]
     Indication: Colitis ulcerative
     Dosage: 25 MILLIGRAM, QD
     Dates: start: 20210924, end: 20220114
  16. Purinetone [Concomitant]
     Dosage: 25 MILLIGRAM, QOD
     Dates: start: 20220115
  17. Purinetone [Concomitant]
     Dosage: 50 MILLIGRAM, QOD
     Dates: start: 20220115
  18. Ramnos [Concomitant]
     Indication: Colitis ulcerative
     Dosage: 750 MILLIGRAM, BID
     Dates: start: 20211127, end: 20211206
  19. Tridol retard [Concomitant]
     Indication: Colitis ulcerative
     Dosage: 100 MILLIGRAM, TID
     Dates: start: 20210308, end: 20210328
  20. CELEBREX [Concomitant]
     Active Substance: CELECOXIB
     Indication: Colitis ulcerative
     Dosage: 200 MILLIGRAM, BID
     Dates: start: 20210924, end: 20211217
  21. RACECADOTRIL [Concomitant]
     Active Substance: RACECADOTRIL
     Indication: Colitis ulcerative
     Dosage: 100 MILLIGRAM, TID
     Dates: start: 20210308, end: 20210328

REACTIONS (1)
  - Cellulitis [Recovered/Resolved]

NARRATIVE: CASE EVENT DATE: 20210413
